FAERS Safety Report 23838445 (Version 1)
Quarter: 2024Q2

REPORT INFORMATION
  Report Type: Spontaneous
  Country: US (occurrence: None)
  Receive Date: 20240508
  Receipt Date: 20240508
  Transmission Date: 20240716
  Serious: No
  Sender: FDA-Public Use
  Company Number: None

PATIENT
  Age: 55 Year
  Sex: Female

DRUGS (1)
  1. XDEMVY [Suspect]
     Active Substance: LOTILANER
     Indication: Demodex blepharitis
     Dosage: 1 DROP(S) - GTT BID OPHTHALMIC?
     Route: 047
     Dates: start: 20240412, end: 20240416

REACTIONS (4)
  - Therapy cessation [None]
  - Hypersensitivity [None]
  - Ocular hyperaemia [None]
  - Eye infection [None]

NARRATIVE: CASE EVENT DATE: 20240414
